FAERS Safety Report 13716781 (Version 1)
Quarter: 2017Q3

REPORT INFORMATION
  Report Type: Spontaneous
  Country: US (occurrence: US)
  Receive Date: 20170705
  Receipt Date: 20170705
  Transmission Date: 20171127
  Serious: No
  Sender: FDA-Public Use
  Company Number: US-TEVA-750891ACC

PATIENT

DRUGS (1)
  1. BUPROPION XL ACTAVIS [Suspect]
     Active Substance: BUPROPION
     Route: 065

REACTIONS (2)
  - Product substitution issue [Unknown]
  - Urticaria [Unknown]
